FAERS Safety Report 13163700 (Version 1)
Quarter: 2017Q1

REPORT INFORMATION
  Report Type: Spontaneous
  Country: CA (occurrence: CA)
  Receive Date: 20170130
  Receipt Date: 20170130
  Transmission Date: 20170428
  Serious: Yes (Other)
  Sender: FDA-Public Use
  Company Number: CA-009507513-1701CAN012407

PATIENT
  Sex: Male

DRUGS (13)
  1. ALVESCO [Suspect]
     Active Substance: CICLESONIDE
     Indication: PRODUCT USED FOR UNKNOWN INDICATION
     Dosage: 1 DF, QD, AEROSOL, METRED DOSE
  2. ALVESCO [Suspect]
     Active Substance: CICLESONIDE
     Dosage: 1 DF, BID (2 EVERY ONE DAY)
  3. ALVESCO [Suspect]
     Active Substance: CICLESONIDE
     Dosage: UNK
     Route: 065
  4. ADVAIR HFA [Suspect]
     Active Substance: FLUTICASONE PROPIONATE\SALMETEROL XINAFOATE
     Indication: COUGH
     Dosage: 1 DF, BID (2 EVERY 1 DAY)
     Route: 065
  5. ALVESCO [Suspect]
     Active Substance: CICLESONIDE
     Indication: PRODUCT USED FOR UNKNOWN INDICATION
     Dosage: 1 DF, UNK
     Route: 065
  6. SINGULAIR [Suspect]
     Active Substance: MONTELUKAST SODIUM
     Indication: COUGH
     Dosage: UNK
     Route: 065
  7. ADVAIR HFA [Suspect]
     Active Substance: FLUTICASONE PROPIONATE\SALMETEROL XINAFOATE
     Indication: PRODUCT USED FOR UNKNOWN INDICATION
     Dosage: 2 DF, BID (2 EVERY 1 DAY, DURATION OF THERAPY: 2.0 YEARS)
     Route: 065
  8. ALVESCO [Suspect]
     Active Substance: CICLESONIDE
     Dosage: 1 DF, ONE EVERY ONE DAY
     Route: 065
  9. ALVESCO [Suspect]
     Active Substance: CICLESONIDE
     Dosage: 1 DF, ONE EVERY ONE DAY
     Route: 065
  10. ADVAIR HFA [Suspect]
     Active Substance: FLUTICASONE PROPIONATE\SALMETEROL XINAFOATE
     Dosage: 2 DF, UNK
     Route: 065
  11. FLUTICASONE PROPIONATE. [Suspect]
     Active Substance: FLUTICASONE PROPIONATE
     Indication: PRODUCT USED FOR UNKNOWN INDICATION
     Dosage: 2 EVERY 1 DAY,
     Route: 055
  12. FLUTICASONE PROPIONATE. [Suspect]
     Active Substance: FLUTICASONE PROPIONATE
     Dosage: 2 EVERY ONE DAY
     Route: 065
  13. ALVESCO [Suspect]
     Active Substance: CICLESONIDE
     Dosage: 1 DF, TID (3 EVERY ONE DAY)
     Route: 065

REACTIONS (10)
  - Condition aggravated [Unknown]
  - Cough [Unknown]
  - Arthralgia [Unknown]
  - Cardiovascular disorder [Unknown]
  - Influenza [Unknown]
  - Upper respiratory tract infection [Unknown]
  - Prescribed overdose [Unknown]
  - Off label use [Unknown]
  - Intentional product misuse [Unknown]
  - Pneumonia [Unknown]
